FAERS Safety Report 11154392 (Version 1)
Quarter: 2015Q2

REPORT INFORMATION
  Report Type: Spontaneous
  Country: US (occurrence: US)
  Receive Date: 20150602
  Receipt Date: 20150602
  Transmission Date: 20150821
  Serious: No
  Sender: FDA-Public Use
  Company Number: US-NOVEN PHARMACEUTICALS, INC.-14US013048

PATIENT
  Age: 42 Year
  Sex: Female

DRUGS (6)
  1. LISINOPRIL. [Concomitant]
     Active Substance: LISINOPRIL
     Indication: HYPERTENSION
     Dosage: UNK
     Route: 048
  2. UNSPECIFED MEDICATION FOR DEPRESSION [Concomitant]
     Dosage: UNK
  3. UNSPECIFED MEDICATION FOR BLADDER CONTROL [Concomitant]
     Indication: BLADDER DISORDER
  4. DAYTRANA [Suspect]
     Active Substance: METHYLPHENIDATE
     Indication: SOMNOLENCE
     Dosage: 30 MG, UNK
     Route: 062
  5. UNSPECIFED MEDICATION FOR SLEEP PROBLEMS [Concomitant]
     Indication: SLEEP DISORDER
     Dosage: UNK
  6. ADDERALL [Concomitant]
     Active Substance: AMPHETAMINE ASPARTATE\AMPHETAMINE SULFATE\DEXTROAMPHETAMINE SACCHARATE\DEXTROAMPHETAMINE SULFATE
     Indication: SOMNOLENCE
     Dosage: UNK
     Route: 048

REACTIONS (4)
  - Drug dose omission [Not Recovered/Not Resolved]
  - Hypersomnia [Not Recovered/Not Resolved]
  - Off label use [Not Recovered/Not Resolved]
  - Wrong technique in drug usage process [Not Recovered/Not Resolved]

NARRATIVE: CASE EVENT DATE: 20141126
